FAERS Safety Report 10343219 (Version 2)
Quarter: 2014Q3

REPORT INFORMATION
  Report Type: Spontaneous
  Country: US (occurrence: None)
  Receive Date: 20140723
  Receipt Date: 20140911
  Transmission Date: 20150326
  Serious: Yes (Hospitalization)
  Sender: FDA-Public Use
  Company Number: UNT-2014-002670

PATIENT
  Age: 63 Year
  Sex: Female
  Weight: 81.6 kg

DRUGS (3)
  1. TYVASO [Suspect]
     Active Substance: TREPROSTINIL
     Indication: COR PULMONALE CHRONIC
     Route: 055
     Dates: start: 20131025
  2. TRACLEER [Concomitant]
     Active Substance: BOSENTAN\BOSENTAN MONOHYDRATE
  3. REVATIO (SILDENAFIL CITRATE) [Concomitant]

REACTIONS (8)
  - Gout [None]
  - Fatigue [None]
  - Pain in extremity [None]
  - Oedema peripheral [None]
  - Gastrointestinal haemorrhage [None]
  - Scleroderma [None]
  - Faeces discoloured [None]
  - Arthralgia [None]

NARRATIVE: CASE EVENT DATE: 20140616
